FAERS Safety Report 13541433 (Version 1)
Quarter: 2020Q3

REPORT INFORMATION
  Report Type: Report from Study
  Country: FR (occurrence: FR)
  Receive Date: 20170512
  Receipt Date: 20170512
  Transmission Date: 20201105
  Serious: Yes (Death, Other)
  Sender: FDA-Public Use
  Company Number: FR-ASTRAZENECA-2016SE26727

PATIENT
  Age: 21007 Day
  Sex: Male
  Weight: 64 kg

DRUGS (18)
  1. INEXIUM [Concomitant]
     Active Substance: ESOMEPRAZOLE
     Indication: GASTROOESOPHAGEAL REFLUX DISEASE
     Route: 048
     Dates: start: 20150203, end: 20150303
  2. PRIMPERAN [Concomitant]
     Active Substance: METOCLOPRAMIDE HYDROCHLORIDE
     Indication: VOMITING
     Dosage: 10.0MG AS REQUIRED
     Route: 048
     Dates: start: 20160307, end: 20160324
  3. TREMELIMUMAB. [Suspect]
     Active Substance: TREMELIMUMAB
     Indication: NON-SMALL CELL LUNG CANCER
     Route: 042
     Dates: start: 20160223, end: 20160223
  4. OXYNORM [Concomitant]
     Active Substance: OXYCODONE HYDROCHLORIDE
     Indication: CHEST PAIN
     Dosage: 15.0MG AS REQUIRED
     Route: 048
     Dates: start: 20151224
  5. MACROGOL [Concomitant]
     Active Substance: POLYETHYLENE GLYCOLS
     Indication: CONSTIPATION
     Dosage: 2 SACHET QD
     Route: 048
     Dates: start: 20151224
  6. PRIMPERAN [Concomitant]
     Active Substance: METOCLOPRAMIDE HYDROCHLORIDE
     Indication: NAUSEA
     Dosage: 10.0MG AS REQUIRED
     Route: 048
     Dates: start: 20160307, end: 20160324
  7. KETOPROFEN. [Concomitant]
     Active Substance: KETOPROFEN
     Indication: CHEST PAIN
     Route: 048
     Dates: start: 20160203, end: 20160303
  8. PARACETAMOL [Concomitant]
     Active Substance: ACETAMINOPHEN
     Indication: CHEST PAIN
     Dosage: 1.0G AS REQUIRED
     Route: 048
     Dates: start: 20151224
  9. CIPROFLOXACIN. [Concomitant]
     Active Substance: CIPROFLOXACIN
     Indication: PROPHYLAXIS
     Route: 042
     Dates: start: 20160304, end: 20160321
  10. PRIMPERAN [Concomitant]
     Active Substance: METOCLOPRAMIDE HYDROCHLORIDE
     Indication: NAUSEA
     Dosage: 10.0MG AS REQUIRED
     Route: 042
     Dates: start: 20160303, end: 20160307
  11. INIPOMP [Concomitant]
     Active Substance: PANTOPRAZOLE SODIUM
     Indication: GASTROOESOPHAGEAL REFLUX DISEASE
     Route: 048
     Dates: start: 20160307, end: 20160325
  12. INIPOMP [Concomitant]
     Active Substance: PANTOPRAZOLE SODIUM
     Indication: GASTROOESOPHAGEAL REFLUX DISEASE
     Route: 042
     Dates: start: 20160303, end: 20160307
  13. MEDI4736 [Suspect]
     Active Substance: DURVALUMAB
     Indication: NON-SMALL CELL LUNG CANCER
     Route: 042
     Dates: start: 20160223, end: 20160223
  14. OXYCONTIN [Concomitant]
     Active Substance: OXYCODONE HYDROCHLORIDE
     Indication: CHEST PAIN
     Route: 048
     Dates: start: 20151224
  15. KETOPROFEN. [Concomitant]
     Active Substance: KETOPROFEN
     Indication: CHEST PAIN
     Dosage: 100.0MG AS REQUIRED
     Route: 042
     Dates: start: 20160303, end: 20160309
  16. JAMYLENE [Concomitant]
     Active Substance: DOCUSATE SODIUM
     Indication: CONSTIPATION
     Dosage: 50.0MG AS REQUIRED
     Route: 048
     Dates: start: 20160223
  17. PERFALGAN [Concomitant]
     Active Substance: ACETAMINOPHEN
     Indication: CHEST PAIN
     Dosage: 1.0G AS REQUIRED
     Route: 042
     Dates: start: 20160303
  18. PRIMPERAN [Concomitant]
     Active Substance: METOCLOPRAMIDE HYDROCHLORIDE
     Indication: VOMITING
     Dosage: 10.0MG AS REQUIRED
     Route: 042
     Dates: start: 20160303, end: 20160307

REACTIONS (1)
  - Interstitial lung disease [Recovering/Resolving]

NARRATIVE: CASE EVENT DATE: 20160309
